FAERS Safety Report 10628903 (Version 1)
Quarter: 2014Q4

REPORT INFORMATION
  Report Type: Spontaneous
  Country: US (occurrence: US)
  Receive Date: 20141205
  Receipt Date: 20141205
  Transmission Date: 20150529
  Serious: Yes (Hospitalization)
  Sender: FDA-Public Use
  Company Number: US-BRISTOL-MYERS SQUIBB COMPANY-21325006

PATIENT
  Age: 81 Year
  Sex: Male

DRUGS (1)
  1. KENALOG-40 [Suspect]
     Active Substance: TRIAMCINOLONE ACETONIDE
     Dates: start: 20140617

REACTIONS (2)
  - Product quality issue [Unknown]
  - Sepsis [Unknown]

NARRATIVE: CASE EVENT DATE: 20140619
